FAERS Safety Report 6569906-1 (Version None)
Quarter: 2010Q1

REPORT INFORMATION
  Report Type: 
  Country: None (occurrence: None)
  Receive Date: 20100204
  Receipt Date: 20100127
  Transmission Date: 20100710
  Serious: Yes (Hospitalization, Other)
  Sender: FDA-Public Use
  Company Number: PHEH2009US16142

PATIENT
  Sex: Female
  Weight: 87.528 kg

DRUGS (7)
  1. EXJADE [Suspect]
     Indication: HAEMOCHROMATOSIS
     Dosage: 2500 MG, QD
     Route: 048
     Dates: start: 20071205, end: 20080502
  2. EXJADE [Suspect]
     Dosage: 3000 MG, QD
     Route: 048
     Dates: start: 20080502, end: 20091016
  3. EXJADE [Suspect]
     Dosage: UNK
     Route: 048
     Dates: start: 20091115
  4. AMBIEN [Concomitant]
     Indication: SLEEP DISORDER
     Dosage: 6.25 MG, QHS
     Route: 048
  5. DASATINIB [Concomitant]
     Indication: MYELODYSPLASTIC SYNDROME
     Dosage: 50 MG, QD
     Route: 048
     Dates: start: 20090601, end: 20091001
  6. FOLIC ACID [Concomitant]
     Dosage: 0.5 MG, QD
     Route: 048
  7. TRAMADOL [Concomitant]
     Indication: PAIN
     Dosage: 50 MG, UNK
     Route: 048

REACTIONS (12)
  - ABNORMAL FAECES [None]
  - BLOOD CREATININE INCREASED [None]
  - BLOOD UREA INCREASED [None]
  - GASTROINTESTINAL HAEMORRHAGE [None]
  - GLOMERULAR FILTRATION RATE DECREASED [None]
  - HAEMATOCRIT DECREASED [None]
  - HAEMOGLOBIN DECREASED [None]
  - METAMYELOCYTE COUNT INCREASED [None]
  - MONOCYTE COUNT INCREASED [None]
  - PLATELET COUNT DECREASED [None]
  - RED BLOOD CELL COUNT DECREASED [None]
  - RED CELL DISTRIBUTION WIDTH INCREASED [None]
